FAERS Safety Report 19855787 (Version 3)
Quarter: 2021Q4

REPORT INFORMATION
  Report Type: Report from Study
  Country: US (occurrence: US)
  Receive Date: 20210920
  Receipt Date: 20211019
  Transmission Date: 20220303
  Serious: Yes (Life-Threatening, Hospitalization)
  Sender: FDA-Public Use
  Company Number: US-CELGENE-USA-20210903434

PATIENT
  Age: 73 Year
  Sex: Male

DRUGS (1)
  1. BREYANZI [Suspect]
     Active Substance: LISOCABTAGENE MARALEUCEL
     Indication: Non-Hodgkin^s lymphoma
     Route: 041
     Dates: start: 20210902, end: 20210902

REACTIONS (3)
  - Unresponsive to stimuli [Unknown]
  - Central nervous system infection [Unknown]
  - Neurological examination abnormal [Unknown]

NARRATIVE: CASE EVENT DATE: 20210903
